FAERS Safety Report 8911828 (Version 3)
Quarter: 2013Q3

REPORT INFORMATION
  Report Type: Spontaneous
  Country: US (occurrence: US)
  Receive Date: 20121115
  Receipt Date: 20130904
  Transmission Date: 20140515
  Serious: Yes (Hospitalization)
  Sender: FDA-Public Use
  Company Number: US-GLAXOSMITHKLINE-A1001090A

PATIENT
  Sex: Female

DRUGS (3)
  1. FLOLAN [Suspect]
     Indication: PULMONARY ARTERIAL HYPERTENSION
     Dosage: 29.9NGKM CONTINUOUS
     Route: 042
     Dates: start: 20101022
  2. LETAIRIS [Concomitant]
  3. COUMADIN [Concomitant]

REACTIONS (5)
  - Thyroidectomy [Unknown]
  - Sinusitis [Unknown]
  - Ear infection [Unknown]
  - Catheter site infection [Unknown]
  - Pseudomonas test positive [Unknown]
